FAERS Safety Report 12287946 (Version 2)
Quarter: 2016Q2

REPORT INFORMATION
  Report Type: Spontaneous
  Country: US (occurrence: US)
  Receive Date: 20160420
  Receipt Date: 20160519
  Transmission Date: 20160815
  Serious: Yes (Other)
  Sender: FDA-Public Use
  Company Number: US-BAYER-2016-070375

PATIENT
  Age: 49 Year
  Sex: Female

DRUGS (1)
  1. CLIMARA PRO [Suspect]
     Active Substance: ESTRADIOL\LEVONORGESTREL
     Indication: MENOPAUSAL SYMPTOMS
     Dosage: 0.45/0.15MG/DAY
     Route: 062
     Dates: start: 201602

REACTIONS (2)
  - Uterine haemorrhage [None]
  - Product adhesion issue [None]

NARRATIVE: CASE EVENT DATE: 2016
